FAERS Safety Report 10007959 (Version 2)
Quarter: 2014Q2

REPORT INFORMATION
  Report Type: Spontaneous
  Country: CA (occurrence: CA)
  Receive Date: 20140313
  Receipt Date: 20140521
  Transmission Date: 20141212
  Serious: Yes (Other)
  Sender: FDA-Public Use
  Company Number: PHHY2014CA028793

PATIENT
  Sex: Female

DRUGS (1)
  1. DILTIAZEM SANDOZ [Suspect]
     Indication: BLOOD PRESSURE
     Dosage: 120 MG, UNK
     Route: 048

REACTIONS (10)
  - Renal pain [Not Recovered/Not Resolved]
  - Eye swelling [Recovered/Resolved]
  - Eye discharge [Recovered/Resolved]
  - Epistaxis [Recovered/Resolved]
  - Choking [Recovered/Resolved]
  - Vision blurred [Not Recovered/Not Resolved]
  - Upper-airway cough syndrome [Not Recovered/Not Resolved]
  - Nasopharyngitis [Not Recovered/Not Resolved]
  - Nausea [Not Recovered/Not Resolved]
  - Drug effect incomplete [Not Recovered/Not Resolved]
